FAERS Safety Report 11300839 (Version 1)
Quarter: 2015Q3

REPORT INFORMATION
  Report Type: Spontaneous
  Country: US (occurrence: US)
  Receive Date: 20150722
  Receipt Date: 20150722
  Transmission Date: 20151125
  Serious: No
  Sender: FDA-Public Use
  Company Number: US-ELI_LILLY_AND_COMPANY-US201208004374

PATIENT
  Sex: Female

DRUGS (20)
  1. HUMATROPE [Suspect]
     Active Substance: SOMATROPIN
     Dosage: 0.5 MG, QD
  2. HUMATROPE [Suspect]
     Active Substance: SOMATROPIN
     Dosage: 0.5 MG, QD
  3. HUMATROPE [Suspect]
     Active Substance: SOMATROPIN
     Dosage: 0.5 MG, QD
  4. HUMATROPE [Suspect]
     Active Substance: SOMATROPIN
     Dosage: 0.5 MG, QD
  5. HUMATROPE [Suspect]
     Active Substance: SOMATROPIN
     Dosage: 0.5 MG, QD
  6. HUMATROPE [Suspect]
     Active Substance: SOMATROPIN
     Dosage: 0.5 MG, QD
  7. HUMATROPE [Suspect]
     Active Substance: SOMATROPIN
     Dosage: 0.5 MG, QD
  8. HUMATROPE [Suspect]
     Active Substance: SOMATROPIN
     Dosage: 0.5 MG, QD
  9. HUMATROPE [Suspect]
     Active Substance: SOMATROPIN
     Dosage: 0.5 MG, QD
  10. HUMATROPE [Suspect]
     Active Substance: SOMATROPIN
     Dosage: 0.5 MG, QD
  11. HUMATROPE [Suspect]
     Active Substance: SOMATROPIN
     Dosage: 0.5 MG, QD
  12. HUMATROPE [Suspect]
     Active Substance: SOMATROPIN
     Dosage: 0.5 MG, QD
  13. HUMATROPE [Suspect]
     Active Substance: SOMATROPIN
     Dosage: 0.5 MG, QD
  14. HUMATROPE [Suspect]
     Active Substance: SOMATROPIN
     Indication: DWARFISM
     Dosage: 0.5 MG, QD
  15. HUMATROPE [Suspect]
     Active Substance: SOMATROPIN
     Dosage: 0.5 MG, QD
  16. HUMATROPE [Suspect]
     Active Substance: SOMATROPIN
     Dosage: 0.5 MG, QD
  17. HUMATROPE [Suspect]
     Active Substance: SOMATROPIN
     Dosage: 0.5 MG, QD
  18. HUMATROPE [Suspect]
     Active Substance: SOMATROPIN
     Dosage: 0.5 MG, QD
  19. HUMATROPE [Suspect]
     Active Substance: SOMATROPIN
     Dosage: 0.5 MG, QD
  20. HUMATROPE [Suspect]
     Active Substance: SOMATROPIN
     Dosage: 0.5 MG, QD

REACTIONS (2)
  - Reaction to drug excipients [Unknown]
  - Wrong technique in product usage process [Unknown]
